FAERS Safety Report 13519071 (Version 2)
Quarter: 2017Q2

REPORT INFORMATION
  Report Type: Spontaneous
  Country: SE (occurrence: SE)
  Receive Date: 20170505
  Receipt Date: 20170511
  Transmission Date: 20170830
  Serious: Yes (Life-Threatening, Other)
  Sender: FDA-Public Use
  Company Number: SE-MYLANLABS-2017M1026846

PATIENT

DRUGS (1)
  1. LOSARTAN MYLAN 50 MG FILM-COATED TABLETS [Suspect]
     Active Substance: LOSARTAN POTASSIUM
     Indication: PRODUCT USED FOR UNKNOWN INDICATION
     Dosage: 50 MG, QD
     Dates: start: 20170417

REACTIONS (5)
  - Blood pressure increased [Recovered/Resolved]
  - Diplopia [Unknown]
  - Gait disturbance [Unknown]
  - Headache [Unknown]
  - Tremor [Unknown]
